FAERS Safety Report 5613852-4 (Version None)
Quarter: 2008Q1

REPORT INFORMATION
  Report Type: 
  Country: None (occurrence: None)
  Receive Date: 20080130
  Receipt Date: 20071112
  Transmission Date: 20080703
  Serious: Yes (Other)
  Sender: FDA-Public Use
  Company Number: USEN-78VKHL

PATIENT
  Sex: Male

DRUGS (2)
  1. DURAPREP [Suspect]
     Indication: PREOPERATIVE CARE
     Dosage: TOPICAL; SINGLE APPLICATION
     Route: 061
  2. PLASTIC DRAPE [Concomitant]

REACTIONS (1)
  - SKIN REACTION [None]
